FAERS Safety Report 9746124 (Version 3)
Quarter: 2015Q3

REPORT INFORMATION
  Report Type: Spontaneous
  Country: US (occurrence: US)
  Receive Date: 20131211
  Receipt Date: 20150722
  Transmission Date: 20151125
  Serious: Yes (Hospitalization)
  Sender: FDA-Public Use
  Company Number: US-GILEAD-2009-0024879

PATIENT
  Age: 47 Year
  Sex: Male
  Weight: 85 kg

DRUGS (11)
  1. AMBIEN [Concomitant]
     Active Substance: ZOLPIDEM TARTRATE
     Indication: ANXIETY
     Dates: start: 2005
  2. NITROQUICK [Concomitant]
     Active Substance: NITROGLYCERIN
     Indication: ANXIETY
     Dates: start: 2005
  3. ASPIRIN. [Concomitant]
     Active Substance: ASPIRIN
     Dates: start: 2005
  4. LOPERAMIDE [Concomitant]
     Active Substance: LOPERAMIDE
     Indication: DIARRHOEA
     Dates: start: 2005
  5. ATENOLOL. [Concomitant]
     Active Substance: ATENOLOL
     Dates: start: 2004
  6. TRICOR [Concomitant]
     Active Substance: FENOFIBRATE
     Dates: start: 2005
  7. TAGAMET [Concomitant]
     Active Substance: CIMETIDINE
     Dates: start: 200206
  8. ZETIA [Concomitant]
     Active Substance: EZETIMIBE
     Dates: start: 2005
  9. CRESTOR [Concomitant]
     Active Substance: ROSUVASTATIN CALCIUM
     Dates: start: 200206
  10. PLAVIX [Concomitant]
     Active Substance: CLOPIDOGREL BISULFATE
     Dates: start: 2005
  11. ATRIPLA [Suspect]
     Active Substance: EFAVIRENZ\EMTRICITABINE\TENOFOVIR DISOPROXIL FUMARATE
     Indication: HIV INFECTION
     Dates: start: 20070507

REACTIONS (1)
  - Acute kidney injury [Not Recovered/Not Resolved]

NARRATIVE: CASE EVENT DATE: 20090926
